FAERS Safety Report 7803152-6 (Version None)
Quarter: 2011Q4

REPORT INFORMATION
  Report Type: 
  Country: None (occurrence: None)
  Receive Date: 20111007
  Receipt Date: 20110429
  Transmission Date: 20120403
  Serious: Yes (Hospitalization)
  Sender: FDA-Public Use
  Company Number: US-ABBOTT-11P-163-0722547-00

PATIENT
  Age: 28 Year
  Sex: Female

DRUGS (4)
  1. NORVIR [Suspect]
     Indication: ANTIRETROVIRAL THERAPY
     Route: 048
     Dates: start: 20110418
  2. REYATAZ [Suspect]
     Indication: ANTIRETROVIRAL THERAPY
     Route: 048
     Dates: start: 20110418
  3. KALETRA [Suspect]
     Indication: ANTIRETROVIRAL THERAPY
     Dosage: TABLETS/CAPSULES
     Route: 048
     Dates: start: 20110101, end: 20110418
  4. COMBIVIR [Suspect]
     Indication: ANTIRETROVIRAL THERAPY
     Dosage: TABLETS/CAPSULES
     Route: 048
     Dates: start: 20110101, end: 20110418

REACTIONS (2)
  - NAUSEA [None]
  - VOMITING [None]
